FAERS Safety Report 4827538-7 (Version None)
Quarter: 2005Q4

REPORT INFORMATION
  Report Type: 
  Country: None (occurrence: None)
  Receive Date: 20051114
  Receipt Date: 20051021
  Transmission Date: 20060501
  Serious: Yes (Hospitalization)
  Sender: FDA-Public Use
  Company Number: ES-AMGEN-UK155328

PATIENT
  Sex: Female

DRUGS (6)
  1. ARANESP [Suspect]
     Indication: RENAL FAILURE CHRONIC
     Route: 058
     Dates: start: 20050701, end: 20051007
  2. CALCIUM CARBONATE [Concomitant]
     Route: 065
     Dates: end: 20050925
  3. SODIUM BICARBONATE [Concomitant]
     Route: 048
     Dates: end: 20050927
  4. TRIMETAZIDINE [Concomitant]
     Route: 048
     Dates: end: 20050924
  5. FERROUS GLUCONATE [Concomitant]
     Route: 048
     Dates: end: 20051003
  6. SINEMET [Concomitant]
     Route: 048
     Dates: end: 20051003

REACTIONS (4)
  - CLONIC CONVULSION [None]
  - LOSS OF CONSCIOUSNESS [None]
  - RECTAL HAEMORRHAGE [None]
  - URINARY TRACT INFECTION [None]
